FAERS Safety Report 8541407-0 (Version None)
Quarter: 2012Q3

REPORT INFORMATION
  Report Type: 
  Country: None (occurrence: None)
  Receive Date: 20120726
  Receipt Date: 20110920
  Transmission Date: 20120928
  Serious: No
  Sender: FDA-Public Use
  Company Number: US-ASTRAZENECA-2011SE56471

PATIENT
  Age: 56 Year
  Sex: Female
  Weight: 77.1 kg

DRUGS (4)
  1. CHERATUSSIN SYRUP [Concomitant]
  2. SEROQUEL XR [Suspect]
     Indication: BIPOLAR DISORDER
     Route: 048
     Dates: start: 20080101
  3. SEROQUEL XR [Suspect]
     Route: 048
  4. LEVOFLOXACIN [Concomitant]

REACTIONS (2)
  - BRONCHITIS [None]
  - SINUSITIS [None]
